FAERS Safety Report 11307849 (Version 3)
Quarter: 2015Q3

REPORT INFORMATION
  Report Type: Spontaneous
  Country: US (occurrence: US)
  Receive Date: 20150724
  Receipt Date: 20150828
  Transmission Date: 20151125
  Serious: No
  Sender: FDA-Public Use
  Company Number: US-ASTRAZENECA-2015SE56761

PATIENT
  Age: 64 Year
  Sex: Male

DRUGS (1)
  1. NEXIUM 24HR [Suspect]
     Active Substance: ESOMEPRAZOLE MAGNESIUM
     Indication: ABDOMINAL PAIN UPPER
     Route: 048

REACTIONS (6)
  - Diarrhoea [Unknown]
  - Malaise [Unknown]
  - Abdominal discomfort [Unknown]
  - Drug ineffective for unapproved indication [Recovered/Resolved]
  - Condition aggravated [Unknown]
  - Product use issue [Unknown]
